FAERS Safety Report 6261253-0 (Version None)
Quarter: 2009Q3

REPORT INFORMATION
  Report Type: 
  Country: None (occurrence: None)
  Receive Date: 20090709
  Receipt Date: 20090630
  Transmission Date: 20100115
  Serious: Yes (Other)
  Sender: FDA-Public Use
  Company Number: US-ROCHE-594634

PATIENT
  Sex: Female
  Weight: 77.1 kg

DRUGS (8)
  1. BONIVA [Suspect]
     Route: 065
     Dates: start: 20080801
  2. AROMASIN [Suspect]
     Indication: BREAST CANCER
     Route: 048
     Dates: start: 20080529
  3. NEXIUM [Suspect]
     Route: 065
  4. ATENOLOL [Concomitant]
  5. HYDROCHLOROTHIAZIDE [Concomitant]
  6. ZETIA [Concomitant]
  7. RED YEAST RICE [Concomitant]
  8. TERIPARATIDE [Concomitant]

REACTIONS (9)
  - ABDOMINAL PAIN UPPER [None]
  - ARTHRALGIA [None]
  - FATIGUE [None]
  - JOINT INJURY [None]
  - MUSCULAR WEAKNESS [None]
  - MYALGIA [None]
  - OSTEOPOROSIS [None]
  - PANCREATIC CYST [None]
  - RASH [None]
